FAERS Safety Report 6838447-6 (Version None)
Quarter: 2010Q3

REPORT INFORMATION
  Report Type: 
  Country: None (occurrence: None)
  Receive Date: 20100713
  Receipt Date: 20070612
  Transmission Date: 20110219
  Serious: No
  Sender: FDA-Public Use
  Company Number: US-PFIZER INC-2007048703

PATIENT
  Sex: Female
  Weight: 63.5 kg

DRUGS (8)
  1. CHANTIX [Suspect]
     Indication: SMOKING CESSATION THERAPY
     Dates: start: 20070601
  2. LISINOPRIL [Concomitant]
  3. PREMARIN [Concomitant]
  4. LASIX [Concomitant]
  5. LEXAPRO [Concomitant]
  6. ACIPHEX [Concomitant]
  7. ADVAIR DISKUS 100/50 [Concomitant]
  8. COMBIVENT [Concomitant]

REACTIONS (3)
  - DECREASED APPETITE [None]
  - DRUG DOSE OMISSION [None]
  - NAUSEA [None]
